FAERS Safety Report 10083648 (Version 1)
Quarter: 2014Q2

REPORT INFORMATION
  Report Type: Spontaneous
  Country: US (occurrence: US)
  Receive Date: 20140417
  Receipt Date: 20140417
  Transmission Date: 20141212
  Serious: No
  Sender: FDA-Public Use
  Company Number: US-PFIZER INC-2014104282

PATIENT
  Age: 49 Year
  Sex: Female

DRUGS (1)
  1. PREMARIN [Suspect]
     Dosage: UNK

REACTIONS (5)
  - Hot flush [Unknown]
  - Vulvovaginal dryness [Unknown]
  - Mood swings [Unknown]
  - Skin discolouration [Unknown]
  - Loss of libido [Unknown]
